FAERS Safety Report 8901803 (Version 1)
Quarter: 2012Q4

REPORT INFORMATION
  Report Type: Spontaneous
  Country: JP (occurrence: None)
  Receive Date: 20121105
  Receipt Date: 20121105
  Transmission Date: 20130627
  Serious: Yes (Hospitalization, Disabling)
  Sender: FDA-Public Use
  Company Number: TCI2012A04722

PATIENT
  Age: 75 Year
  Sex: Female

DRUGS (8)
  1. TAKEPRON OD [Suspect]
     Dosage: 15 mg (15 mg, 1 in 1 D) Per Oral
     Route: 048
     Dates: start: 20110420
  2. CIBENOL [Suspect]
     Indication: PALPITATIONS
     Dosage: 200 mg (200 mg, 1 in 1D), per oral
     Route: 048
     Dates: start: 20110420
  3. CRESTOR (ROSUVASTATIN CALCIUM) [Concomitant]
  4. DEPAS (ETIZOLAM) [Concomitant]
  5. MAGNESIUM OXIDE [Concomitant]
  6. WARFARIN (WARFARIN POTASSIUM) [Concomitant]
  7. TSUMURA TOKISYAKUYAKUSAN (HERBAL EXTRACT NOS) [Concomitant]
  8. MAINTATE (BISOPROLOL FUMARATE) [Concomitant]

REACTIONS (3)
  - Myelodysplastic syndrome [None]
  - Dizziness [None]
  - Vomiting [None]
